FAERS Safety Report 6921966-1 (Version None)
Quarter: 2010Q3

REPORT INFORMATION
  Report Type: 
  Country: None (occurrence: None)
  Receive Date: 20100806
  Receipt Date: 20100524
  Transmission Date: 20110219
  Serious: No
  Sender: FDA-Public Use
  Company Number: 2010-07135

PATIENT
  Age: 83 Year
  Sex: Male

DRUGS (2)
  1. RAPAFLO [Suspect]
     Indication: BENIGN PROSTATIC HYPERPLASIA
     Dosage: 1 CAPSULE, DAILY, ORAL; 1 CAPSULE, DAILY, ORAL
     Route: 048
     Dates: start: 20100201, end: 20100501
  2. RAPAFLO [Suspect]
     Indication: BENIGN PROSTATIC HYPERPLASIA
     Dosage: 1 CAPSULE, DAILY, ORAL; 1 CAPSULE, DAILY, ORAL
     Route: 048
     Dates: start: 20100501

REACTIONS (1)
  - CONSTIPATION [None]
